FAERS Safety Report 7670125-6 (Version None)
Quarter: 2011Q3

REPORT INFORMATION
  Report Type: 
  Country: None (occurrence: None)
  Receive Date: 20110808
  Receipt Date: 20110802
  Transmission Date: 20111222
  Serious: Yes (Death)
  Sender: FDA-Public Use
  Company Number: FR-ASTRAZENECA-2011SE46233

PATIENT
  Age: 87 Year
  Sex: Male

DRUGS (11)
  1. AVODART [Suspect]
     Route: 048
     Dates: end: 20110628
  2. CITALOPRAM HYDROBROMIDE [Suspect]
     Route: 048
     Dates: end: 20110628
  3. ASPIRIN [Concomitant]
     Route: 048
  4. LEVOTHYROXINE SODIUM [Concomitant]
     Route: 048
  5. CRESTOR [Suspect]
     Indication: DYSLIPIDAEMIA
     Route: 048
     Dates: end: 20110627
  6. VITAMIN B-12 [Concomitant]
     Dates: start: 20110615, end: 20110625
  7. CALCIPARINE [Concomitant]
     Dates: start: 20110628
  8. NOVOMIX [Concomitant]
     Dosage: 100 IU/ML
  9. VALSARTAN [Suspect]
     Route: 048
     Dates: end: 20110628
  10. NEBIVOLOL HCL [Concomitant]
     Route: 048
  11. LOVENOX [Concomitant]
     Dates: end: 20110627

REACTIONS (5)
  - RENAL FAILURE [None]
  - DISTURBANCE IN ATTENTION [None]
  - RHABDOMYOLYSIS [None]
  - HEPATITIS [None]
  - PANCREATITIS [None]
